FAERS Safety Report 8107093-9 (Version None)
Quarter: 2012Q1

REPORT INFORMATION
  Report Type: 
  Country: None (occurrence: None)
  Receive Date: 20120202
  Receipt Date: 20120116
  Transmission Date: 20120608
  Serious: Yes (Hospitalization)
  Sender: FDA-Public Use
  Company Number: NL-MEDIMMUNE-MEDI-0014271

PATIENT
  Sex: Male
  Weight: 2.96 kg

DRUGS (5)
  1. SYNAGIS [Suspect]
     Indication: PREMATURE BABY
     Route: 030
     Dates: start: 20111125, end: 20111125
  2. RANITIDINE HCL [Concomitant]
     Dates: start: 20110101
  3. FERRO [Concomitant]
     Dates: start: 20110101
  4. DOMPERIDONE MALEATE [Concomitant]
     Dates: start: 20110101
  5. SYNAGIS [Suspect]
     Route: 030
     Dates: start: 20111219

REACTIONS (2)
  - ANAEMIA [None]
  - VOMITING [None]
